FAERS Safety Report 8991817 (Version 3)
Quarter: 2013Q1

REPORT INFORMATION
  Report Type: Spontaneous
  Country: US (occurrence: US)
  Receive Date: 20121231
  Receipt Date: 20130226
  Transmission Date: 20140127
  Serious: Yes (Other)
  Sender: FDA-Public Use
  Company Number: US-JNJFOC-20121210032

PATIENT
  Sex: Male
  Weight: 68.49 kg

DRUGS (6)
  1. ZYTIGA [Suspect]
     Indication: PROSTATIC SPECIFIC ANTIGEN INCREASED
     Dosage: 250 X4 DAILY
     Route: 048
     Dates: start: 20121012
  2. ZYTIGA [Suspect]
     Indication: PROSTATE CANCER
     Dosage: 250 X4 DAILY
     Route: 048
     Dates: start: 20121012
  3. HYDRALAZINE [Suspect]
     Indication: HYPERTENSION
     Route: 065
  4. AMLODIPINE [Concomitant]
     Indication: BLOOD PRESSURE
     Route: 065
  5. SIMVASTATIN [Concomitant]
     Indication: BLOOD CHOLESTEROL
     Route: 065
  6. PREDNISONE [Concomitant]
     Indication: PRODUCT USED FOR UNKNOWN INDICATION
     Route: 048

REACTIONS (3)
  - Hypertension [Recovering/Resolving]
  - Headache [Not Recovered/Not Resolved]
  - Drug ineffective [Not Recovered/Not Resolved]
